FAERS Safety Report 9689431 (Version 2)
Quarter: 2013Q4

REPORT INFORMATION
  Report Type: Spontaneous
  Country: US (occurrence: US)
  Receive Date: 20131114
  Receipt Date: 20131128
  Transmission Date: 20140711
  Serious: Yes (Other)
  Sender: FDA-Public Use
  Company Number: US-RB-060353-13

PATIENT
  Age: 14 Year
  Sex: Male

DRUGS (1)
  1. DELSYM ADULT ORANGE [Suspect]
     Indication: INTENTIONAL DRUG MISUSE
     Dosage: PATIENT DRANK ENTIRE BOTTLE
     Route: 048
     Dates: start: 20131121

REACTIONS (3)
  - Intentional drug misuse [Not Recovered/Not Resolved]
  - Intentional overdose [Not Recovered/Not Resolved]
  - Mydriasis [Not Recovered/Not Resolved]
